FAERS Safety Report 8611859 (Version 3)
Quarter: 2013Q4

REPORT INFORMATION
  Report Type: Spontaneous
  Country: GR (occurrence: GR)
  Receive Date: 20120613
  Receipt Date: 20131203
  Transmission Date: 20140711
  Serious: Yes (Other)
  Sender: FDA-Public Use
  Company Number: GR-JNJFOC-20120601474

PATIENT
  Age: 63 Year
  Sex: Male
  Weight: 69 kg

DRUGS (4)
  1. REMICADE [Suspect]
     Indication: RHEUMATOID ARTHRITIS
     Route: 042
     Dates: end: 20120413
  2. REMICADE [Suspect]
     Indication: RHEUMATOID ARTHRITIS
     Dosage: TOTAL DOSE OF 200MG. AGE AT THE START OF INFLIXIMAB THERAPY WAS 60 YEARS.
     Route: 042
     Dates: start: 20091112
  3. METHOTREXATE [Concomitant]
     Indication: RHEUMATOID ARTHRITIS
  4. CO DIOVAN [Concomitant]
     Indication: HYPERTENSION
     Dosage: 80/12.5 MG
     Route: 065
     Dates: start: 20030803

REACTIONS (1)
  - Renal cancer metastatic [Not Recovered/Not Resolved]
